FAERS Safety Report 4905287-4 (Version None)
Quarter: 2006Q1

REPORT INFORMATION
  Report Type: 
  Country: None (occurrence: None)
  Receive Date: 20060208
  Receipt Date: 20060127
  Transmission Date: 20060701
  Serious: Yes (Hospitalization)
  Sender: FDA-Public Use
  Company Number: PHHO2006BR01800

PATIENT
  Age: 31 Year
  Sex: Male

DRUGS (5)
  1. CYCLOSPORINE [Suspect]
     Indication: RENAL TRANSPLANT
     Dosage: 87.5 MG, BID
     Route: 048
     Dates: start: 20030327, end: 20030805
  2. MYCOPHENOLATE MOFETIL [Concomitant]
     Indication: RENAL TRANSPLANT
     Dosage: 1 G, TID
     Route: 048
     Dates: start: 20030327
  3. PREDNISONE [Concomitant]
     Indication: RENAL TRANSPLANT
     Dosage: 45 MG, QD
     Route: 048
     Dates: start: 20030327
  4. GANCICLOVIR [Concomitant]
     Dates: start: 20030327, end: 20031004
  5. NIFEDIPINE [Concomitant]
     Dates: start: 20030323

REACTIONS (6)
  - BIOPSY KIDNEY [None]
  - COMPLICATIONS OF TRANSPLANTED KIDNEY [None]
  - NEPHRECTOMY [None]
  - NEPHROPATHY TOXIC [None]
  - RENAL CORTICAL NECROSIS [None]
  - THROMBOSIS [None]
